FAERS Safety Report 12746236 (Version 2)
Quarter: 2016Q3

REPORT INFORMATION
  Report Type: Spontaneous
  Country: US (occurrence: US)
  Receive Date: 20160915
  Receipt Date: 20160920
  Transmission Date: 20161109
  Serious: Yes (Hospitalization)
  Sender: FDA-Public Use
  Company Number: US-CELGENEUS-USA-2016092496

PATIENT
  Age: 58 Year
  Sex: Male

DRUGS (2)
  1. REVLIMID [Suspect]
     Active Substance: LENALIDOMIDE
     Indication: PLASMA CELL MYELOMA
     Route: 048
     Dates: start: 20121116
  2. REVLIMID [Suspect]
     Active Substance: LENALIDOMIDE
     Route: 048
     Dates: start: 201305

REACTIONS (5)
  - Vomiting [Unknown]
  - Nausea [Unknown]
  - Hypercalcaemia [Unknown]
  - Chest pain [Unknown]
  - Constipation [Unknown]

NARRATIVE: CASE EVENT DATE: 20160809
